FAERS Safety Report 6369904-7 (Version None)
Quarter: 2009Q3

REPORT INFORMATION
  Report Type: 
  Country: None (occurrence: None)
  Receive Date: 20090923
  Receipt Date: 20070509
  Transmission Date: 20100115
  Serious: Yes (Other)
  Sender: FDA-Public Use
  Company Number: US-ASTRAZENECA-2006UW11339

PATIENT
  Age: 10933 Day
  Sex: Female
  Weight: 123.8 kg

DRUGS (28)
  1. SEROQUEL [Suspect]
     Indication: BIPOLAR DISORDER
     Route: 048
     Dates: start: 20000101, end: 20061201
  2. SEROQUEL [Suspect]
     Dosage: 25 MG - 200 MG
     Route: 048
     Dates: start: 20020214, end: 20061201
  3. GEODON [Concomitant]
  4. HALDOL [Concomitant]
  5. RISPERDAL [Concomitant]
  6. NEURONTIN [Concomitant]
  7. LAMICTAL [Concomitant]
     Dosage: 25 MG TO 100 MG
     Route: 065
  8. KLONOPIN [Concomitant]
     Dosage: 1 MG TO 8 MG
     Route: 065
  9. REMERON [Concomitant]
     Route: 065
  10. EFFEXOR [Concomitant]
     Dosage: 3 GMS TO 4 GMS
     Route: 065
  11. GLUCOPHAGE [Concomitant]
     Dosage: 1000 MG TO 2000 MG
     Route: 065
  12. HUMALOG PEN [Concomitant]
     Route: 065
  13. LANTUS [Concomitant]
     Dosage: 30 UNITS
     Route: 065
  14. GLUCOTROL [Concomitant]
     Route: 065
  15. TRICOR [Concomitant]
     Dosage: 40 MG TO 160 MG
     Route: 065
  16. SERZONE [Concomitant]
     Route: 048
  17. AMITRIPTYLINE [Concomitant]
     Route: 065
  18. ACTOS [Concomitant]
     Route: 065
  19. ZOLOFT [Concomitant]
     Dosage: 50 MG TO 100 MG
     Route: 048
     Dates: end: 20000119
  20. ZYPREXA [Concomitant]
     Dosage: 5 MG TO 10 MG
     Route: 065
  21. VIOXX [Concomitant]
     Route: 065
  22. ATENOLOL [Concomitant]
     Route: 065
  23. PREDNISONE TAB [Concomitant]
     Route: 065
  24. METHOTREXATE [Concomitant]
     Route: 065
  25. NEXIUM [Concomitant]
     Route: 065
  26. AMBIEN [Concomitant]
     Route: 065
  27. VYTORIN [Concomitant]
     Dosage: STRENGTH 10 MG TO 80 MG
     Route: 065
  28. TRAZODONE [Concomitant]
     Dosage: 100 MG TO 400 MG
     Route: 065

REACTIONS (5)
  - DIABETES MELLITUS [None]
  - PANIC ATTACK [None]
  - SUICIDAL BEHAVIOUR [None]
  - SUICIDAL IDEATION [None]
  - SUICIDE ATTEMPT [None]
